FAERS Safety Report 6507699-4 (Version None)
Quarter: 2009Q4

REPORT INFORMATION
  Report Type: 
  Country: None (occurrence: None)
  Receive Date: 20091221
  Receipt Date: 20091204
  Transmission Date: 20100525
  Serious: Yes (Death, Hospitalization)
  Sender: FDA-Public Use
  Company Number: DE-ELI_LILLY_AND_COMPANY-DE200911006383

PATIENT
  Sex: Female
  Weight: 62 kg

DRUGS (19)
  1. DULOXETINE HYDROCHLORIDE [Suspect]
     Indication: DIABETIC NEUROPATHY
     Dosage: 60 MG, EACH EVENING
     Route: 048
     Dates: start: 20090121, end: 20090605
  2. ASPIRIN [Concomitant]
     Indication: TRANSIENT ISCHAEMIC ATTACK
     Dosage: 100 MG, UNK
     Route: 048
     Dates: start: 20080101
  3. TARGIN [Concomitant]
     Dosage: , 2/D
  4. MADOPAR [Concomitant]
     Dosage: UNK, EACH EVENING
  5. NEURO-B FORTE NEU [Concomitant]
     Dosage: 100 MG, EACH MORNING
     Route: 048
     Dates: start: 20090129
  6. ALDACTONE [Concomitant]
     Dosage: 25, EACH MORNING
  7. LOCOL [Concomitant]
     Dosage: 80, EACH EVENING
  8. L-THYROXIN [Concomitant]
  9. METOHEXAL [Concomitant]
     Dosage: 100, EACH MORNING
  10. METOHEXAL [Concomitant]
     Dosage: 1/2, EACH EVENING
  11. DIGITOXIN INJ [Concomitant]
     Dosage: 0.07, UNK
  12. NOVALGIN [Concomitant]
     Dosage: 20 DROPS, 3/D
  13. PANTOZOL [Concomitant]
     Dosage: 40, EACH EVENING
  14. VOLTAREN [Concomitant]
     Dosage: UNK, EACH MORNING
  15. TORSEMIDE [Concomitant]
     Dosage: 10, EACH MORNING
  16. DELIX [Concomitant]
     Dosage: 5, EACH MORNING
  17. INSULIN INSUMAN COMB [Concomitant]
     Dosage: 10 U, EACH MORNING
  18. INSULIN INSUMAN COMB [Concomitant]
     Dosage: 4 U, EACH EVENING
  19. NORSPAN [Concomitant]
     Dosage: 10 UG, UNK
     Dates: start: 20090430, end: 20090507

REACTIONS (2)
  - ABDOMINAL NEOPLASM [None]
  - CARDIAC FAILURE [None]
